FAERS Safety Report 16879195 (Version 12)
Quarter: 2020Q4

REPORT INFORMATION
  Report Type: Report from Study
  Country: AU (occurrence: AU)
  Receive Date: 20191003
  Receipt Date: 20201127
  Transmission Date: 20210113
  Serious: Yes (Other)
  Sender: FDA-Public Use
  Company Number: PHHO2019AU008528

PATIENT
  Age: 19 Year
  Sex: Male
  Weight: 76 kg

DRUGS (49)
  1. GEMCITABINE. [Suspect]
     Active Substance: GEMCITABINE
     Indication: NON-HODGKIN^S LYMPHOMA
     Dosage: 1.9 G, ONCE/SINGLE
     Route: 041
     Dates: start: 20190815
  2. DEXAMETHASONE. [Suspect]
     Active Substance: DEXAMETHASONE
     Indication: B-CELL LYMPHOMA
     Dosage: 40 MG, OTHER
     Route: 048
     Dates: start: 20190815
  3. PIPERACILIN/TAZOBACTAM [Concomitant]
     Active Substance: PIPERACILLIN SODIUM\TAZOBACTAM SODIUM
     Dosage: UNK
     Route: 065
     Dates: start: 20190814, end: 20190815
  4. METOCLOPRAMIDE HYDROCHLORIDE MONOHYDRATE [Concomitant]
     Active Substance: METOCLOPRAMIDE HYDROCHLORIDE
     Indication: NAUSEA
  5. VENETOCLAX. [Concomitant]
     Active Substance: VENETOCLAX
     Indication: PYREXIA
     Dosage: UNK
     Route: 065
     Dates: start: 20190814, end: 20190818
  6. VENETOCLAX. [Concomitant]
     Active Substance: VENETOCLAX
     Dosage: UNK
     Route: 065
     Dates: start: 20190815, end: 20190815
  7. VENETOCLAX. [Concomitant]
     Active Substance: VENETOCLAX
     Dosage: UNK
     Route: 065
     Dates: start: 20190815, end: 20190815
  8. CEPHALEXIN. [Concomitant]
     Active Substance: CEPHALEXIN
     Indication: PROPHYLAXIS
     Dosage: UNK
     Route: 065
     Dates: start: 20190730, end: 20190806
  9. OXYCODONE [Concomitant]
     Active Substance: OXYCODONE
     Indication: PAIN
     Dosage: UNK
     Route: 065
     Dates: start: 20190814, end: 20190818
  10. ONDANSETRON [Concomitant]
     Active Substance: ONDANSETRON
     Indication: PROPHYLAXIS
     Dosage: UNK
     Route: 065
     Dates: start: 20190818
  11. BACTRIM DS [Concomitant]
     Active Substance: SULFAMETHOXAZOLE\TRIMETHOPRIM
     Indication: PROPHYLAXIS
     Dosage: UNK
     Route: 065
     Dates: start: 20190814
  12. VENETOCLAX. [Concomitant]
     Active Substance: VENETOCLAX
     Dosage: UNK
     Route: 065
     Dates: start: 20190814, end: 20190815
  13. AMOXICILLIN. [Concomitant]
     Active Substance: AMOXICILLIN
     Indication: INFECTION
     Dosage: UNK
     Route: 065
     Dates: start: 20190818, end: 20190822
  14. PANTOPRAZOLE [Concomitant]
     Active Substance: PANTOPRAZOLE
     Indication: PROPHYLAXIS
     Dosage: UNK
     Route: 065
     Dates: start: 20190815, end: 20190818
  15. OXYCODONE [Concomitant]
     Active Substance: OXYCODONE
     Indication: ANALGESIC THERAPY
     Dosage: UNK
     Route: 065
     Dates: start: 20190730, end: 20190810
  16. HEPARIN SODIUM. [Concomitant]
     Active Substance: HEPARIN SODIUM
     Indication: CENTRAL VENOUS CATHETERISATION
     Dosage: UNK
     Route: 065
     Dates: start: 20190818, end: 20190818
  17. HYDROCORTISONE. [Concomitant]
     Active Substance: HYDROCORTISONE
     Indication: PREMEDICATION
     Dosage: UNK
     Route: 065
     Dates: start: 20190815, end: 20190815
  18. LORATADINE. [Concomitant]
     Active Substance: LORATADINE
     Indication: PREMEDICATION
     Dosage: UNK
     Route: 065
     Dates: start: 20190815, end: 20190815
  19. POTASSIUM CHLORIDE. [Concomitant]
     Active Substance: POTASSIUM CHLORIDE
     Indication: PROPHYLAXIS
     Dosage: UNK
     Route: 065
     Dates: start: 20190814, end: 20190817
  20. VENETOCLAX. [Concomitant]
     Active Substance: VENETOCLAX
     Dosage: UNK
     Route: 065
     Dates: start: 20190814
  21. RITUXIMAB. [Suspect]
     Active Substance: RITUXIMAB
     Indication: B-CELL LYMPHOMA
     Dosage: 700 MG, ONCE/SINGLE
     Route: 041
     Dates: start: 20190815
  22. PANTOPRAZOLE [Concomitant]
     Active Substance: PANTOPRAZOLE
     Indication: NAUSEA
     Dosage: UNK
     Route: 065
     Dates: start: 20190814, end: 20190817
  23. PIPERACILIN/TAZOBACTAM [Concomitant]
     Active Substance: PIPERACILLIN SODIUM\TAZOBACTAM SODIUM
     Indication: PYREXIA
     Dosage: UNK
     Route: 065
     Dates: start: 20190814, end: 20190818
  24. GENTAMICIN. [Concomitant]
     Active Substance: GENTAMICIN
     Indication: PYREXIA
     Dosage: UNK
     Route: 065
     Dates: start: 20190814, end: 20190814
  25. ALLOPURINOL. [Concomitant]
     Active Substance: ALLOPURINOL
     Indication: PROPHYLAXIS
     Dosage: UNK
     Route: 065
     Dates: start: 20190814
  26. RASBURICASE [Concomitant]
     Active Substance: RASBURICASE
     Indication: PROPHYLAXIS
     Dosage: UNK
     Route: 065
     Dates: start: 20190815, end: 20190815
  27. TEMAZEPAM. [Concomitant]
     Active Substance: TEMAZEPAM
     Indication: INSOMNIA
     Dosage: UNK
     Route: 065
     Dates: start: 20190814, end: 20191008
  28. VENETOCLAX. [Concomitant]
     Active Substance: VENETOCLAX
     Dosage: UNK
     Route: 065
     Dates: start: 20190927, end: 20190930
  29. CYCLIZINE [Concomitant]
     Active Substance: CYCLIZINE
     Indication: PROPHYLAXIS
     Dosage: UNK
     Route: 065
     Dates: start: 20190816, end: 20190817
  30. FLUDARABINE [Concomitant]
     Active Substance: FLUDARABINE PHOSPHATE
     Indication: CHEMOTHERAPY
     Dosage: UNK
     Route: 065
     Dates: start: 20190927, end: 20190929
  31. FUROSEMIDE. [Concomitant]
     Active Substance: FUROSEMIDE
     Indication: GENERALISED OEDEMA
     Dosage: UNK
     Route: 065
     Dates: start: 20190817, end: 20190817
  32. NETUPITANT;PALONOSETRON [Concomitant]
     Active Substance: NETUPITANT\PALONOSETRON HYDROCHLORIDE
     Indication: PREMEDICATION
     Dosage: UNK
     Route: 065
     Dates: start: 20190815, end: 20190815
  33. PARACETAMOL [Concomitant]
     Active Substance: ACETAMINOPHEN
     Indication: PYREXIA
     Dosage: UNK
     Route: 065
     Dates: start: 20190814, end: 20190815
  34. VENETOCLAX. [Concomitant]
     Active Substance: VENETOCLAX
     Dosage: UNK
     Route: 065
     Dates: start: 20190906, end: 20190907
  35. CYCLOPHOSPHAMIDE. [Concomitant]
     Active Substance: CYCLOPHOSPHAMIDE
     Indication: CHEMOTHERAPY
     Dosage: UNK
     Route: 065
     Dates: start: 20190927, end: 20190929
  36. CISPLATIN. [Suspect]
     Active Substance: CISPLATIN
     Indication: B-CELL LYMPHOMA
     Dosage: 143 MG, ONCE/SINGLE
     Route: 041
     Dates: start: 20190816
  37. SULFAMETHOXAZOLE AND TRIMETHOPRIM [Concomitant]
     Active Substance: SULFAMETHOXAZOLE\TRIMETHOPRIM
     Indication: INFECTION
     Dosage: UNK
     Route: 065
     Dates: start: 20190818
  38. MAGNESIUM SULFATE. [Concomitant]
     Active Substance: MAGNESIUM SULFATE
     Dosage: UNK
     Route: 065
     Dates: start: 20190817, end: 20190817
  39. ONDANSETRON [Concomitant]
     Active Substance: ONDANSETRON
     Indication: PREMEDICATION
     Dosage: UNK
     Route: 065
     Dates: start: 20190814, end: 20190816
  40. POTASSIUM CHLORIDE. [Concomitant]
     Active Substance: POTASSIUM CHLORIDE
     Dosage: UNK
     Route: 065
     Dates: start: 20190817, end: 20190817
  41. VENETOCLAX. [Concomitant]
     Active Substance: VENETOCLAX
     Indication: PAIN
     Dosage: UNK
     Route: 065
     Dates: start: 20190814, end: 20190817
  42. VALACICLOVIR [Concomitant]
     Active Substance: VALACYCLOVIR HYDROCHLORIDE
     Indication: ANTIVIRAL PROPHYLAXIS
     Dosage: UNK
     Route: 065
     Dates: start: 20190301, end: 20190925
  43. VENETOCLAX. [Concomitant]
     Active Substance: VENETOCLAX
     Dosage: UNK
     Route: 065
     Dates: start: 20190924, end: 20190924
  44. VENETOCLAX. [Concomitant]
     Active Substance: VENETOCLAX
     Dosage: UNK
     Route: 065
     Dates: start: 20190926, end: 20190926
  45. FLUCONAZOLE. [Concomitant]
     Active Substance: FLUCONAZOLE
     Indication: PROPHYLAXIS
     Dosage: UNK
     Route: 065
     Dates: start: 20190814, end: 20190814
  46. LORAZEPAM. [Concomitant]
     Active Substance: LORAZEPAM
     Indication: NAUSEA
     Dosage: UNK
     Route: 065
     Dates: start: 20190816, end: 20190816
  47. MAGNESIUM SULFATE. [Concomitant]
     Active Substance: MAGNESIUM SULFATE
     Indication: PROPHYLAXIS
     Dosage: UNK
     Route: 065
     Dates: start: 20190814, end: 20190814
  48. METOCLOPRAMIDE HYDROCHLORIDE MONOHYDRATE [Concomitant]
     Active Substance: METOCLOPRAMIDE HYDROCHLORIDE
     Indication: VOMITING
     Dosage: UNK
     Route: 065
     Dates: start: 20190814, end: 20190815
  49. VENETOCLAX. [Concomitant]
     Active Substance: VENETOCLAX
     Dosage: UNK
     Route: 065
     Dates: start: 20190925, end: 20190925

REACTIONS (1)
  - Liver function test abnormal [Recovered/Resolved]

NARRATIVE: CASE EVENT DATE: 20190822
